FAERS Safety Report 6180325-2 (Version None)
Quarter: 2009Q2

REPORT INFORMATION
  Report Type: 
  Country: None (occurrence: None)
  Receive Date: 20090504
  Receipt Date: 20090504
  Transmission Date: 20091009
  Serious: Yes (Other)
  Sender: FDA-Public Use
  Company Number: None

PATIENT
  Age: 67 Year
  Sex: Male
  Weight: 84.8226 kg

DRUGS (1)
  1. CUBICIN [Suspect]
     Indication: BACTERAEMIA
     Dosage: 500 MG Q24H IV
     Route: 042
     Dates: start: 20090330, end: 20090415

REACTIONS (1)
  - BLOOD CREATINE PHOSPHOKINASE INCREASED [None]
